FAERS Safety Report 6688389-4 (Version None)
Quarter: 2010Q2

REPORT INFORMATION
  Report Type: 
  Country: None (occurrence: None)
  Receive Date: 20100420
  Receipt Date: 20100415
  Transmission Date: 20101027
  Serious: Yes (Death)
  Sender: FDA-Public Use
  Company Number: PHHY2010US24320

PATIENT
  Sex: Female

DRUGS (27)
  1. SANDOSTATIN LAR [Suspect]
     Indication: GASTROINTESTINAL ANGIODYSPLASIA HAEMORRHAGIC
     Dosage: 10 MG, UNK
  2. SANDOSTATIN LAR [Suspect]
     Dosage: 20 MG, UNK
  3. SANDOSTATIN LAR [Suspect]
     Dosage: 20 MG, UNK
  4. SANDOSTATIN LAR [Suspect]
     Dosage: 20 MG, UNK
  5. ZEBETA [Concomitant]
     Dosage: 5 MG, UNK
  6. PLAVIX [Concomitant]
     Dosage: 75 MG, UNK
  7. ALBUTEROL [Concomitant]
     Dosage: UNK
  8. HYDROXYCHLOROQUINE SULFATE [Concomitant]
     Dosage: UNK
  9. ASPIRIN [Concomitant]
     Dosage: UNK
  10. NITROGLYCERIN [Concomitant]
     Dosage: UNK
  11. GEMFIBROZIL [Concomitant]
     Dosage: UNK
  12. HYDROCHLOROTHIAZIDE [Concomitant]
     Dosage: UNK
  13. OMEPRAZOLE [Concomitant]
     Dosage: UNK
  14. FOLIC ACID [Concomitant]
     Dosage: UNK
  15. ESTRADIOL [Concomitant]
     Dosage: UNK
  16. CARAFATE [Concomitant]
     Dosage: UNK
  17. LASIX [Concomitant]
     Dosage: UNK
  18. KLOR-CON [Concomitant]
     Dosage: UNK
  19. TRAVATAN [Concomitant]
     Dosage: UNK
  20. AZOPT [Concomitant]
     Dosage: UNK
  21. IRON [Concomitant]
     Dosage: UNK
  22. MULTI-VITAMINS [Concomitant]
     Dosage: UNK
  23. COMBIVENT [Concomitant]
     Dosage: UNK
  24. DARVOCET [Concomitant]
     Dosage: UNK
  25. ADVAIR DISKUS 100/50 [Concomitant]
     Dosage: UNK
  26. FISH OIL [Concomitant]
     Dosage: UNK
  27. COENZYME Q10 [Concomitant]
     Dosage: UNK

REACTIONS (1)
  - CARDIO-RESPIRATORY ARREST [None]
